FAERS Safety Report 20802901 (Version 1)
Quarter: 2022Q2

REPORT INFORMATION
  Report Type: Spontaneous
  Country: CA (occurrence: CA)
  Receive Date: 20220509
  Receipt Date: 20220509
  Transmission Date: 20220720
  Serious: Yes (Other)
  Sender: FDA-Public Use
  Company Number: CA-JNJFOC-20220512833

PATIENT
  Age: 19 Year
  Sex: Male
  Weight: 60 kg

DRUGS (2)
  1. REMICADE [Suspect]
     Active Substance: INFLIXIMAB
     Indication: Crohn^s disease
     Route: 058
  2. VEDOLIZUMAB [Concomitant]
     Active Substance: VEDOLIZUMAB

REACTIONS (7)
  - Anal fissure [Unknown]
  - Anal fistula [Unknown]
  - Fistula [Unknown]
  - Weight increased [Unknown]
  - Anal abscess [Unknown]
  - Off label use [Unknown]
  - Incorrect route of product administration [Unknown]
